FAERS Safety Report 5473071-1 (Version None)
Quarter: 2007Q3

REPORT INFORMATION
  Report Type: 
  Country: None (occurrence: None)
  Receive Date: 20070926
  Receipt Date: 20070911
  Transmission Date: 20080115
  Serious: Yes (Other)
  Sender: FDA-Public Use
  Company Number: M7001-0009-SPO-FR

PATIENT
  Age: 83 Year
  Sex: Male

DRUGS (1)
  1. TARGRETIN [Suspect]
     Indication: MYCOSIS FUNGOIDES
     Dosage: ORAL
     Route: 048
     Dates: start: 20070101

REACTIONS (2)
  - CONDITION AGGRAVATED [None]
  - HYPOACUSIS [None]
